FAERS Safety Report 25978649 (Version 2)
Quarter: 2025Q4

REPORT INFORMATION
  Report Type: Spontaneous
  Country: US (occurrence: US)
  Receive Date: 20251030
  Receipt Date: 20251231
  Transmission Date: 20260117
  Serious: No
  Sender: Kenvue
  Company Number: US-ACCREDO-lkam-20251006231080

PATIENT
  Age: 84 Year
  Sex: Female
  Weight: 78.925 kg

DRUGS (29)
  1. TYLENOL [Suspect]
     Active Substance: ACETAMINOPHEN
     Indication: Visual impairment
     Dosage: UNK
     Route: 065
  2. TYLENOL [Suspect]
     Active Substance: ACETAMINOPHEN
     Indication: Illness
  3. TYLENOL [Suspect]
     Active Substance: ACETAMINOPHEN
     Indication: Headache
  4. TYLENOL [Suspect]
     Active Substance: ACETAMINOPHEN
     Indication: Nausea
  5. TYLENOL [Suspect]
     Active Substance: ACETAMINOPHEN
     Indication: Diarrhoea
  6. TYLENOL [Suspect]
     Active Substance: ACETAMINOPHEN
     Indication: Hypoaesthesia
  7. TYLENOL [Suspect]
     Active Substance: ACETAMINOPHEN
     Indication: Feeling cold
  8. TYLENOL [Suspect]
     Active Substance: ACETAMINOPHEN
     Indication: Pain in jaw
  9. TYLENOL [Suspect]
     Active Substance: ACETAMINOPHEN
     Indication: Insomnia
  10. IMODIUM [Suspect]
     Active Substance: LOPERAMIDE HYDROCHLORIDE
     Indication: Visual impairment
     Dosage: UNK
     Route: 065
  11. IMODIUM [Suspect]
     Active Substance: LOPERAMIDE HYDROCHLORIDE
     Indication: Illness
  12. IMODIUM [Suspect]
     Active Substance: LOPERAMIDE HYDROCHLORIDE
     Indication: Headache
  13. IMODIUM [Suspect]
     Active Substance: LOPERAMIDE HYDROCHLORIDE
     Indication: Nausea
  14. IMODIUM [Suspect]
     Active Substance: LOPERAMIDE HYDROCHLORIDE
     Indication: Diarrhoea
  15. IMODIUM [Suspect]
     Active Substance: LOPERAMIDE HYDROCHLORIDE
     Indication: Hypoaesthesia
  16. IMODIUM [Suspect]
     Active Substance: LOPERAMIDE HYDROCHLORIDE
     Indication: Feeling cold
  17. IMODIUM [Suspect]
     Active Substance: LOPERAMIDE HYDROCHLORIDE
     Indication: Pain in jaw
  18. IMODIUM [Suspect]
     Active Substance: LOPERAMIDE HYDROCHLORIDE
     Indication: Insomnia
  19. PEPCID [Concomitant]
     Active Substance: FAMOTIDINE
     Indication: Visual impairment
     Dosage: UNK
     Route: 065
  20. PEPCID [Concomitant]
     Active Substance: FAMOTIDINE
     Indication: Illness
  21. PEPCID [Concomitant]
     Active Substance: FAMOTIDINE
     Indication: Headache
  22. PEPCID [Concomitant]
     Active Substance: FAMOTIDINE
     Indication: Nausea
  23. PEPCID [Concomitant]
     Active Substance: FAMOTIDINE
     Indication: Diarrhoea
  24. PEPCID [Concomitant]
     Active Substance: FAMOTIDINE
     Indication: Hypoaesthesia
  25. PEPCID [Concomitant]
     Active Substance: FAMOTIDINE
     Indication: Feeling cold
  26. PEPCID [Concomitant]
     Active Substance: FAMOTIDINE
     Indication: Pain in jaw
  27. PEPCID [Concomitant]
     Active Substance: FAMOTIDINE
     Indication: Insomnia
  28. UPTRAVI [Concomitant]
     Active Substance: SELEXIPAG
     Indication: Pulmonary hypertension
     Dosage: 200 MICROGRAM, TWICE A DAY
     Route: 061
  29. UPTRAVI [Concomitant]
     Active Substance: SELEXIPAG
     Dosage: 200 MICROGRAM
     Route: 065

REACTIONS (2)
  - Drug ineffective [Unknown]
  - Product use in unapproved indication [Unknown]

NARRATIVE: CASE EVENT DATE: 20251001
